FAERS Safety Report 4473919-3 (Version None)
Quarter: 2004Q4

REPORT INFORMATION
  Report Type: 
  Country: None (occurrence: None)
  Receive Date: 20041008
  Receipt Date: 20040921
  Transmission Date: 20050328
  Serious: Yes (Other)
  Sender: FDA-Public Use
  Company Number: US_0408104990

PATIENT
  Age: 46 Year
  Sex: Female
  Weight: 117 kg

DRUGS (20)
  1. XIGRIS [Suspect]
     Indication: PNEUMONIA
     Dosage: 20 UG
     Dates: start: 20040620, end: 20040621
  2. HEPARIN SODIUM [Concomitant]
  3. ENOXAPARIN SODIUM [Concomitant]
  4. ACYCLOVIR (ACICLOVIR EG) [Concomitant]
  5. ACYCLOVIR (ACICLOVIR EG) [Concomitant]
  6. MEROPENIN (PHENOXYMETHYLPENICILLIN) [Concomitant]
  7. FLUCONAZOLE [Concomitant]
  8. DOXYCYCLINE [Concomitant]
  9. PANTOPRAZOLE [Concomitant]
  10. PHENYTOIN [Concomitant]
  11. VANCOMYCIN [Concomitant]
  12. HYDROCORTISONE [Concomitant]
  13. INSULIN [Concomitant]
  14. MAGNESIUM SULFATE [Concomitant]
  15. POTASSIUM CHLORIDE [Concomitant]
  16. LANTUS [Concomitant]
  17. GLUCERNA [Concomitant]
  18. ALBUMIN (HUMAN) [Concomitant]
  19. REGLAN [Concomitant]
  20. LASIX [Concomitant]

REACTIONS (7)
  - ANAEMIA [None]
  - GASTRIC ULCER HAEMORRHAGE [None]
  - GRAND MAL CONVULSION [None]
  - GRIMACING [None]
  - HAEMATEMESIS [None]
  - INTERNATIONAL NORMALISED RATIO INCREASED [None]
  - PLATELET COUNT DECREASED [None]
